FAERS Safety Report 16245005 (Version 3)
Quarter: 2019Q2

REPORT INFORMATION
  Report Type: Report from Study
  Country: TW (occurrence: TW)
  Receive Date: 20190426
  Receipt Date: 20190625
  Transmission Date: 20190711
  Serious: Yes (Hospitalization)
  Sender: FDA-Public Use
  Company Number: TW-BAYER-2019-046359

PATIENT
  Age: 80 Year
  Sex: Female

DRUGS (3)
  1. LASIX [Concomitant]
     Active Substance: FUROSEMIDE
     Dosage: UNK
     Dates: end: 201902
  2. ADEMPAS [Suspect]
     Active Substance: RIOCIGUAT
     Indication: PULMONARY HYPERTENSION
     Dosage: 2.5 MG, TID
     Route: 048
     Dates: start: 20171227
  3. WARFARIN [Concomitant]
     Active Substance: WARFARIN
     Dosage: UNK
     Dates: end: 201902

REACTIONS (11)
  - Emergency care [Not Recovered/Not Resolved]
  - Blood pressure systolic increased [None]
  - Renal impairment [Recovered/Resolved]
  - Haemoglobin decreased [Not Recovered/Not Resolved]
  - Abdominal pain [None]
  - Drug ineffective [None]
  - Pleural effusion [Recovered/Resolved]
  - Constipation [None]
  - Nausea [None]
  - Dyspnoea [Recovering/Resolving]
  - Generalised oedema [None]

NARRATIVE: CASE EVENT DATE: 20190217
